FAERS Safety Report 4482268-9 (Version None)
Quarter: 2004Q4

REPORT INFORMATION
  Report Type: 
  Country: None (occurrence: None)
  Receive Date: 20041020
  Receipt Date: 20041004
  Transmission Date: 20050328
  Serious: Yes (Hospitalization)
  Sender: FDA-Public Use
  Company Number: USA040362090

PATIENT
  Age: 68 Year
  Sex: Female
  Weight: 61 kg

DRUGS (15)
  1. FORTEO [Suspect]
     Indication: OSTEOPOROSIS
     Dosage: 20 UG/1 DAY
     Dates: start: 20031118
  2. PREMPRO [Concomitant]
  3. DEPAKOTE [Concomitant]
  4. IMDUR [Concomitant]
  5. SEROQUEL [Concomitant]
  6. ADVAIR [Concomitant]
  7. PROVENTIL (SALBUTAMOL SULFATE) [Concomitant]
  8. PREVACID [Concomitant]
  9. PLAVIX [Concomitant]
  10. MAXZIDE [Concomitant]
  11. ALTACE [Concomitant]
  12. CALCIUM AND VITAMIN D [Concomitant]
  13. PRAVACHOL [Concomitant]
  14. AMARYL [Concomitant]
  15. NITROBID (NITROFURANTOIN) [Concomitant]

REACTIONS (4)
  - ASTHENIA [None]
  - COMA [None]
  - HYPOGLYCAEMIA [None]
  - PHARMACEUTICAL PRODUCT COMPLAINT [None]
